FAERS Safety Report 13894288 (Version 1)
Quarter: 2017Q3

REPORT INFORMATION
  Report Type: Report from Study
  Country: None (occurrence: ES)
  Receive Date: 20170822
  Receipt Date: 20170822
  Transmission Date: 20171127
  Serious: Yes (Hospitalization)
  Sender: FDA-Public Use
  Company Number: ES-ABBVIE-17K-144-2079125-00

PATIENT
  Age: 82 Year
  Sex: Female
  Weight: 62 kg

DRUGS (3)
  1. MOTILIUM [Suspect]
     Active Substance: DOMPERIDONE
     Route: 048
     Dates: start: 201708
  2. DUODOPA [Suspect]
     Active Substance: CARBIDOPA\LEVODOPA
     Indication: PARKINSON^S DISEASE
     Route: 050
     Dates: start: 20170411
  3. MOTILIUM [Suspect]
     Active Substance: DOMPERIDONE
     Indication: VOMITING
     Route: 048
     Dates: start: 20170819, end: 201708

REACTIONS (2)
  - Urinary tract infection [Not Recovered/Not Resolved]
  - Vomiting [Unknown]

NARRATIVE: CASE EVENT DATE: 201708
